FAERS Safety Report 12459676 (Version 2)
Quarter: 2016Q3

REPORT INFORMATION
  Report Type: Spontaneous
  Country: IT (occurrence: IT)
  Receive Date: 20160613
  Receipt Date: 20160714
  Transmission Date: 20161109
  Serious: Yes (Hospitalization)
  Sender: FDA-Public Use
  Company Number: IT-TEVA-666989ACC

PATIENT
  Age: 68 Year
  Sex: Male

DRUGS (8)
  1. DELORAZEPAM [Suspect]
     Active Substance: DELORAZEPAM
     Indication: AGITATION
     Dosage: 15 GTT DAILY;
     Route: 048
     Dates: start: 20160502, end: 20160509
  2. METFORAL - 850 MG - COMPRESSE RIVESTITE CON FILM [Concomitant]
     Indication: PRODUCT USED FOR UNKNOWN INDICATION
  3. LANSOPRAZOLE. [Concomitant]
     Active Substance: LANSOPRAZOLE
     Indication: PRODUCT USED FOR UNKNOWN INDICATION
  4. LIORESAL - 25 MG - COMPRESSE [Concomitant]
     Indication: PRODUCT USED FOR UNKNOWN INDICATION
  5. QUETIAPINE. [Suspect]
     Active Substance: QUETIAPINE
     Indication: BIPOLAR DISORDER
     Dosage: 250 MILLIGRAM DAILY;
     Route: 048
     Dates: start: 20160502, end: 20160509
  6. ANAFRANIL [Suspect]
     Active Substance: CLOMIPRAMINE HYDROCHLORIDE
     Indication: AGITATION
     Dosage: 50 MILLIGRAM DAILY;
     Route: 048
     Dates: start: 20160502, end: 20160509
  7. CARDIRENE - 160 MG - POLVERE PER SOLUZIONE ORALE [Concomitant]
     Indication: PRODUCT USED FOR UNKNOWN INDICATION
  8. LASIX - 25 MG - COMPRESSE [Concomitant]
     Indication: PRODUCT USED FOR UNKNOWN INDICATION

REACTIONS (2)
  - Coma [Recovered/Resolved]
  - Electrocardiogram QT prolonged [Recovered/Resolved]

NARRATIVE: CASE EVENT DATE: 20160510
